FAERS Safety Report 10094981 (Version 1)
Quarter: 2014Q2

REPORT INFORMATION
  Report Type: Spontaneous
  Country: US (occurrence: None)
  Receive Date: 20140421
  Receipt Date: 20140421
  Transmission Date: 20141212
  Serious: No
  Sender: FDA-Public Use
  Company Number: None

PATIENT
  Age: 44 Year
  Sex: Female

DRUGS (2)
  1. SOVALDI [Suspect]
     Indication: CHRONIC HEPATITIS C
     Route: 048
     Dates: start: 20140319
  2. RIBAVIRIN [Suspect]
     Indication: CHRONIC HEPATITIS C
     Route: 048
     Dates: start: 20140319

REACTIONS (7)
  - Scratch [None]
  - Rash [None]
  - Erythema [None]
  - Pruritus [None]
  - Pruritus [None]
  - Pruritus [None]
  - Haemorrhage [None]
